FAERS Safety Report 8239496-6 (Version None)
Quarter: 2012Q1

REPORT INFORMATION
  Report Type: 
  Country: None (occurrence: None)
  Receive Date: 20120328
  Receipt Date: 20120321
  Transmission Date: 20120608
  Serious: No
  Sender: FDA-Public Use
  Company Number: US-PFIZER INC-2012029664

PATIENT
  Sex: Male

DRUGS (2)
  1. COMBIGAN [Concomitant]
     Dosage: UNK
  2. LATANOPROST [Suspect]
     Indication: GLAUCOMA
     Dosage: UNK, 1X/DAY AT NIGHT
     Route: 047
     Dates: start: 20100712

REACTIONS (1)
  - EYE IRRITATION [None]
